FAERS Safety Report 10605841 (Version 2)
Quarter: 2014Q4

REPORT INFORMATION
  Report Type: Spontaneous
  Country: US (occurrence: None)
  Receive Date: 20141121
  Receipt Date: 20141128
  Transmission Date: 20150529
  Serious: Yes (Death)
  Sender: FDA-Public Use
  Company Number: 2014-US-015011

PATIENT
  Age: 27 Year
  Sex: Male

DRUGS (1)
  1. XYREM [Suspect]
     Active Substance: SODIUM OXYBATE
     Indication: INSOMNIA
     Dosage: 4.5 G, FIRST DOSE, ORAL
     Route: 048
     Dates: start: 201109

REACTIONS (1)
  - Off label use [None]

NARRATIVE: CASE EVENT DATE: 201410
